FAERS Safety Report 6370164-1 (Version None)
Quarter: 2009Q3

REPORT INFORMATION
  Report Type: 
  Country: None (occurrence: None)
  Receive Date: 20090923
  Receipt Date: 20090911
  Transmission Date: 20100115
  Serious: Yes (Other)
  Sender: FDA-Public Use
  Company Number: CA-ASTRAZENECA-2009SE13605

PATIENT

DRUGS (1)
  1. ZESTRIL [Suspect]

REACTIONS (2)
  - COUGH [None]
  - SPINAL FRACTURE [None]
